FAERS Safety Report 5778035-6 (Version None)
Quarter: 2008Q2

REPORT INFORMATION
  Report Type: 
  Country: None (occurrence: None)
  Receive Date: 20080619
  Receipt Date: 20080611
  Transmission Date: 20081010
  Serious: Yes (Death)
  Sender: FDA-Public Use
  Company Number: JP-BRISTOL-MYERS SQUIBB COMPANY-14225544

PATIENT
  Age: 40 Year
  Sex: Male
  Weight: 61 kg

DRUGS (7)
  1. ABILIFY [Suspect]
     Indication: SCHIZOPHRENIA
     Dosage: 6MG,DAILY 29-OCT-07 TO 25-NOV-07, DOSE INCREASED TO 24MG DAILY 26-NOV-07 TO 17-JAN-08.
     Route: 048
     Dates: start: 20080118, end: 20080602
  2. LITHIUM CARBONATE [Suspect]
     Route: 048
     Dates: end: 20080602
  3. ZYPREXA [Suspect]
     Route: 048
     Dates: end: 20080602
  4. PROMETHAZINE [Suspect]
     Route: 065
     Dates: end: 20080602
  5. EURODIN [Suspect]
     Route: 048
     Dates: end: 20080602
  6. SERENACE [Concomitant]
  7. CHLORPROMAZINE HCL [Concomitant]

REACTIONS (1)
  - SUDDEN DEATH [None]
